FAERS Safety Report 14329945 (Version 1)
Quarter: 2017Q4

REPORT INFORMATION
  Report Type: Spontaneous
  Country: FR (occurrence: FR)
  Receive Date: 20171227
  Receipt Date: 20171227
  Transmission Date: 20180321
  Serious: Yes (Other)
  Sender: FDA-Public Use
  Company Number: PHHY2017FR124035

PATIENT
  Age: 6 Month
  Sex: Female
  Weight: 3 kg

DRUGS (1)
  1. TASIGNA [Suspect]
     Active Substance: NILOTINIB
     Indication: FOETAL EXPOSURE DURING PREGNANCY
     Dosage: MATERNAL DOSE: 4DF, QD
     Route: 064
     Dates: start: 20150619, end: 20160912

REACTIONS (4)
  - Foetal exposure during pregnancy [Unknown]
  - Premature baby [Unknown]
  - Skull malformation [Unknown]
  - Extrasystoles [Unknown]

NARRATIVE: CASE EVENT DATE: 20160820
